FAERS Safety Report 8423480-3 (Version None)
Quarter: 2012Q2

REPORT INFORMATION
  Report Type: 
  Country: None (occurrence: None)
  Receive Date: 20120608
  Receipt Date: 20120601
  Transmission Date: 20120825
  Serious: Yes (Hospitalization, Other)
  Sender: FDA-Public Use
  Company Number: US-MPIJNJ-2012-03998

PATIENT
  Age: 49 Year
  Sex: Female
  Weight: 70.5 kg

DRUGS (4)
  1. RITUXIMAB [Suspect]
     Dosage: UNK
  2. VELCADE [Suspect]
     Dosage: UNK
     Route: 042
     Dates: start: 20120218, end: 20120504
  3. EVEROLIMUS [Suspect]
     Dosage: 5 MG, QD
     Route: 048
     Dates: start: 20110218, end: 20120504
  4. RITUXIMAB [Suspect]
     Indication: THROMBOTIC THROMBOCYTOPENIC PURPURA

REACTIONS (3)
  - HAEMOLYTIC URAEMIC SYNDROME [None]
  - THROMBOTIC THROMBOCYTOPENIC PURPURA [None]
  - HAEMORRHAGIC STROKE [None]
